FAERS Safety Report 15172684 (Version 1)
Quarter: 2018Q3

REPORT INFORMATION
  Report Type: Spontaneous
  Country: JP (occurrence: JP)
  Receive Date: 20180720
  Receipt Date: 20180720
  Transmission Date: 20181010
  Serious: Yes (Death, Other)
  Sender: FDA-Public Use
  Company Number: JP-CELGENEUS-JPN-20180605991

PATIENT
  Age: 73 Year
  Sex: Female

DRUGS (2)
  1. ALLOPURINOL. [Concomitant]
     Active Substance: ALLOPURINOL
     Indication: PROPHYLAXIS
     Dosage: UNKNOWN
     Route: 065
  2. ISTODAX [Suspect]
     Active Substance: ROMIDEPSIN
     Indication: ANGIOIMMUNOBLASTIC T-CELL LYMPHOMA
     Dosage: 7 MILLIGRAM/SQ. METER
     Route: 041
     Dates: start: 20180612

REACTIONS (7)
  - Platelet count decreased [Recovered/Resolved]
  - Blood lactate dehydrogenase increased [Recovering/Resolving]
  - Angioimmunoblastic T-cell lymphoma [Fatal]
  - Tumour lysis syndrome [Recovered/Resolved]
  - Fibrin D dimer increased [Not Recovered/Not Resolved]
  - Hepatic function abnormal [Not Recovered/Not Resolved]
  - Blood calcium decreased [Not Recovered/Not Resolved]

NARRATIVE: CASE EVENT DATE: 20180613
